FAERS Safety Report 6818145-5 (Version None)
Quarter: 2010Q3

REPORT INFORMATION
  Report Type: 
  Country: None (occurrence: None)
  Receive Date: 20100706
  Receipt Date: 20100630
  Transmission Date: 20110219
  Serious: Yes (Death)
  Sender: FDA-Public Use
  Company Number: PHHY2010MX23936

PATIENT
  Sex: Female

DRUGS (3)
  1. ZOMETA [Suspect]
     Indication: HYPERCALCAEMIA
     Dosage: 4 MG ONCE A YEAR
     Route: 042
     Dates: start: 20080101
  2. ZOMETA [Suspect]
     Dosage: 4 MG ONCE A YEAR
     Route: 042
     Dates: start: 20090501
  3. CAPTOPRIL [Concomitant]
     Dosage: UNK
     Dates: start: 20100101

REACTIONS (2)
  - CARDIAC DISORDER [None]
  - CARDIO-RESPIRATORY ARREST [None]
